FAERS Safety Report 6179028-X (Version None)
Quarter: 2009Q2

REPORT INFORMATION
  Report Type: 
  Country: None (occurrence: None)
  Receive Date: 20090505
  Receipt Date: 20090427
  Transmission Date: 20091009
  Serious: Yes (Other)
  Sender: FDA-Public Use
  Company Number: US-ASTRAZENECA-2008UW14981

PATIENT
  Age: 91 Year
  Sex: Male
  Weight: 71.7 kg

DRUGS (10)
  1. PULMICORT FLEXHALER [Suspect]
     Indication: EMPHYSEMA
     Dosage: 180 UG, 2 PUFFS TWICE A DAY
     Route: 055
  2. PULMICORT FLEXHALER [Suspect]
     Dosage: 180 UG, 1 PUFF THREE TIMES A DAY
     Route: 055
  3. GLUCOSAMINE [Concomitant]
  4. VITAMINS [Concomitant]
  5. LYCOPENE [Concomitant]
  6. GINKO [Concomitant]
  7. ASPIRIN [Concomitant]
  8. FURESOMIDE [Concomitant]
  9. KLOR-CON [Concomitant]
  10. ALBUTEROL [Concomitant]

REACTIONS (8)
  - BRAIN NEOPLASM [None]
  - ILL-DEFINED DISORDER [None]
  - PAIN [None]
  - POLLAKIURIA [None]
  - PROSTATE CANCER [None]
  - RHINORRHOEA [None]
  - SNEEZING [None]
  - VISUAL ACUITY REDUCED [None]
